FAERS Safety Report 4393366-2 (Version None)
Quarter: 2004Q3

REPORT INFORMATION
  Report Type: 
  Country: None (occurrence: None)
  Receive Date: 20040707
  Receipt Date: 20040707
  Transmission Date: 20050211
  Serious: Yes (Life-Threatening)
  Sender: FDA-Public Use
  Company Number: None

PATIENT
  Age: 55 Year
  Sex: Male
  Weight: 81.6 kg

DRUGS (3)
  1. LITHIUM CARBONATE [Suspect]
     Indication: BIPOLAR DISORDER
     Dosage: 300 MG 1 QAM AND 2 ORAL
     Route: 048
     Dates: start: 19940101, end: 20040701
  2. LIDOCAINE [Suspect]
     Indication: LOCAL ANAESTHESIA
     Dosage: SQ
     Route: 058
     Dates: start: 20040701, end: 20040701
  3. LIDOCAINE [Suspect]
     Indication: SUTURE INSERTION
     Dosage: SQ
     Route: 058
     Dates: start: 20040701, end: 20040701

REACTIONS (3)
  - CONVULSION [None]
  - LOSS OF CONSCIOUSNESS [None]
  - OPEN WOUND [None]
